FAERS Safety Report 7808601-5 (Version None)
Quarter: 2011Q4

REPORT INFORMATION
  Report Type: 
  Country: None (occurrence: None)
  Receive Date: 20111012
  Receipt Date: 20111006
  Transmission Date: 20120403
  Serious: No
  Sender: FDA-Public Use
  Company Number: US-PFIZER INC-2011141312

PATIENT
  Sex: Female

DRUGS (6)
  1. XALATAN [Suspect]
     Dosage: 1DROP IN RIGHT EYE AT BEDTIME
     Dates: start: 20101102
  2. CYCLOSPORINE [Concomitant]
     Indication: DRY EYE
     Dosage: 1 DROP IN BOTH EYES TWO TIMES A DAY
     Route: 047
  3. LATANOPROST [Suspect]
     Indication: GLAUCOMA
     Dosage: UNK
     Dates: start: 20110101
  4. HYDROCHLOROTHIAZIDE [Concomitant]
     Indication: BLOOD PRESSURE
     Dosage: 25 MG, DAILY
     Route: 048
  5. VITAMIN B COMPLEX CAP [Concomitant]
     Indication: VITAMIN B COMPLEX DEFICIENCY
     Dosage: 50000 IU, WEEKLY
     Route: 048
  6. XALATAN [Suspect]
     Indication: GLAUCOMA
     Dosage: 1 DROP IN RIGHT EYE AT BEDTIME
     Route: 047
     Dates: start: 20081101

REACTIONS (1)
  - DRUG INEFFECTIVE [None]
